FAERS Safety Report 23596982 (Version 1)
Quarter: 2024Q1

REPORT INFORMATION
  Report Type: Spontaneous
  Country: US (occurrence: None)
  Receive Date: 20240305
  Receipt Date: 20240305
  Transmission Date: 20240410
  Serious: Yes (Hospitalization)
  Sender: FDA-Public Use
  Company Number: None

PATIENT
  Age: 32 Year
  Sex: Female
  Weight: 83.2 kg

DRUGS (1)
  1. SPRYCEL [Suspect]
     Active Substance: DASATINIB

REACTIONS (4)
  - Sepsis [None]
  - Mucosal inflammation [None]
  - Acute lymphocytic leukaemia recurrent [None]
  - Bone marrow transplant [None]

NARRATIVE: CASE EVENT DATE: 20240222
